FAERS Safety Report 18418852 (Version 1)
Quarter: 2020Q4

REPORT INFORMATION
  Report Type: Other
  Country: JP (occurrence: JP)
  Receive Date: 20201023
  Receipt Date: 20201023
  Transmission Date: 20210114
  Serious: Yes (Other)
  Sender: FDA-Public Use
  Company Number: JP-ROCHE-2700719

PATIENT
  Age: 50 Year
  Sex: Male

DRUGS (1)
  1. ALTEPLASE. [Suspect]
     Active Substance: ALTEPLASE
     Indication: ISCHAEMIC STROKE
     Dosage: RT-PA (ALTEPLASE: 0.6MG/KG) INTRAVENOUSLY 2 HOURS 38 MINUTES FREQUENCY: 1, FREQUENCY UNIT: 809
     Route: 042

REACTIONS (3)
  - Hemiparesis [Not Recovered/Not Resolved]
  - Peripheral artery occlusion [Unknown]
  - Intracardiac thrombus [Recovered/Resolved]
